FAERS Safety Report 4330288-7 (Version None)
Quarter: 2004Q2

REPORT INFORMATION
  Report Type: 
  Country: None (occurrence: None)
  Receive Date: 20040402
  Receipt Date: 20040325
  Transmission Date: 20050107
  Serious: Yes (Hospitalization)
  Sender: FDA-Public Use
  Company Number: PHNU2004DE01376

PATIENT
  Sex: Female

DRUGS (3)
  1. CLOZARIL [Suspect]
     Indication: PARKINSON'S DISEASE
     Dosage: UNKNOWN
     Route: 048
     Dates: start: 19930301, end: 19930801
  2. BROMOCRIPTINE MESYLATE [Suspect]
     Indication: PARKINSON'S DISEASE
     Dosage: UNKNOWN
     Route: 048
     Dates: start: 19930301, end: 19930801
  3. ANTI-PARKINSON AGENTS [Suspect]
     Indication: PARKINSON'S DISEASE
     Dosage: UNKNOWN
     Route: 065
     Dates: end: 20000101

REACTIONS (2)
  - GENERAL PHYSICAL HEALTH DETERIORATION [None]
  - MIGRAINE [None]
